FAERS Safety Report 4952026-7 (Version None)
Quarter: 2006Q1

REPORT INFORMATION
  Report Type: 
  Country: None (occurrence: None)
  Receive Date: 20060322
  Receipt Date: 20060322
  Transmission Date: 20060701
  Serious: Yes (Other)
  Sender: FDA-Public Use
  Company Number: None

PATIENT
  Age: 21 Year
  Sex: Female
  Weight: 99 kg

DRUGS (1)
  1. ITRACONAZOLE [Suspect]
     Indication: BLASTOMYCOSIS
     Dosage: 200 MG BID PO X1 DOSE
     Route: 048
     Dates: start: 20060310

REACTIONS (2)
  - PHARMACEUTICAL PRODUCT COMPLAINT [None]
  - RASH [None]
